FAERS Safety Report 6176527-1 (Version None)
Quarter: 2009Q2

REPORT INFORMATION
  Report Type: 
  Country: None (occurrence: None)
  Receive Date: 20090501
  Receipt Date: 20081002
  Transmission Date: 20091009
  Serious: Yes (Hospitalization)
  Sender: FDA-Public Use
  Company Number: US-ALEXION-A200800234

PATIENT

DRUGS (4)
  1. SOLIRIS [Suspect]
     Indication: PAROXYSMAL NOCTURNAL HAEMOGLOBINURIA
     Dosage: UNK, SINGLE
     Route: 042
     Dates: start: 20070901, end: 20070901
  2. SOLIRIS [Suspect]
     Dosage: 900 MG, Q2W
     Route: 042
     Dates: start: 20080910, end: 20081008
  3. SYNTHROID [Concomitant]
     Indication: HYPOTHYROIDISM
  4. CHEMOTHERAPEUTICS NOS [Concomitant]
     Indication: NEOPLASM MALIGNANT
     Dosage: Q3W FOR 12W THEN QW FOR 12W
     Dates: start: 20071201, end: 20080601

REACTIONS (5)
  - BREAST RECONSTRUCTION [None]
  - IMPLANT SITE SWELLING [None]
  - LYMPHADENOPATHY [None]
  - POOR VENOUS ACCESS [None]
  - POST PROCEDURAL HAEMORRHAGE [None]
